FAERS Safety Report 4280301-0 (Version None)
Quarter: 2004Q1

REPORT INFORMATION
  Report Type: 
  Country: None (occurrence: None)
  Receive Date: 20040126
  Receipt Date: 20040114
  Transmission Date: 20041129
  Serious: Yes (Hospitalization, Other)
  Sender: FDA-Public Use
  Company Number: FR-JNJFOC-20031200894

PATIENT
  Age: 27 Year
  Sex: Male
  Weight: 62 kg

DRUGS (4)
  1. REMICADE [Suspect]
     Indication: ANKYLOSING SPONDYLITIS
     Dosage: 5 MG/KG, INTRAVENOUS
     Route: 042
     Dates: start: 20030725
  2. NEXEN  (NIMESULIDE) TABLETS [Suspect]
     Dosage: ORAL
     Route: 048
  3. MOPRAL (TABLETS) OMEPRAZOLE [Concomitant]
  4. EFFERALGAN (TABLETS) PARACETAMOL [Concomitant]

REACTIONS (5)
  - COLITIS ULCERATIVE [None]
  - ERYTHEMA NODOSUM [None]
  - HAEMATOCHEZIA [None]
  - MUCOSAL EROSION [None]
  - STREPTOCOCCAL INFECTION [None]
